FAERS Safety Report 14891928 (Version 1)
Quarter: 2018Q2

REPORT INFORMATION
  Report Type: Spontaneous
  Country: IT (occurrence: IT)
  Receive Date: 20180514
  Receipt Date: 20180514
  Transmission Date: 20180711
  Serious: Yes (Other)
  Sender: FDA-Public Use
  Company Number: IT-MYLANLABS-2017M1059385

PATIENT
  Age: 72 Year
  Sex: Female
  Weight: 52 kg

DRUGS (1)
  1. MELOXICAM. [Suspect]
     Active Substance: MELOXICAM
     Indication: PRODUCT USED FOR UNKNOWN INDICATION
     Dosage: 15 MG DAILY
     Route: 048
     Dates: start: 20170906, end: 20170906

REACTIONS (2)
  - Angioedema [Recovered/Resolved]
  - Intentional underdose [Unknown]

NARRATIVE: CASE EVENT DATE: 20170906
